FAERS Safety Report 20123133 (Version 3)
Quarter: 2022Q1

REPORT INFORMATION
  Report Type: Spontaneous
  Country: US (occurrence: US)
  Receive Date: 20211129
  Receipt Date: 20220216
  Transmission Date: 20220423
  Serious: No
  Sender: FDA-Public Use
  Company Number: US-TOLMAR, INC.-21US031240

PATIENT
  Sex: Male

DRUGS (1)
  1. KETOCONAZOLE [Suspect]
     Active Substance: KETOCONAZOLE
     Indication: Alopecia
     Dosage: UNK UNK, 2/WEEK
     Route: 003
     Dates: start: 2021, end: 2021

REACTIONS (3)
  - Scab [Recovered/Resolved]
  - Skin ulcer [Recovered/Resolved]
  - Off label use [Unknown]

NARRATIVE: CASE EVENT DATE: 20210101
